FAERS Safety Report 6384699-9 (Version None)
Quarter: 2009Q4

REPORT INFORMATION
  Report Type: 
  Country: None (occurrence: None)
  Receive Date: 20091001
  Receipt Date: 20090925
  Transmission Date: 20100525
  Serious: Yes (Other)
  Sender: FDA-Public Use
  Company Number: US-WYE-H11274709

PATIENT
  Sex: Female
  Weight: 90.8 kg

DRUGS (3)
  1. PRISTIQ [Suspect]
     Indication: FIBROMYALGIA
     Route: 048
     Dates: start: 20090301, end: 20090601
  2. PRISTIQ [Suspect]
     Route: 048
     Dates: start: 20090601, end: 20090618
  3. VYTORIN [Concomitant]
     Dosage: UNKNOWN

REACTIONS (5)
  - BRONCHITIS [None]
  - CHEST DISCOMFORT [None]
  - DRUG INEFFECTIVE FOR UNAPPROVED INDICATION [None]
  - DYSPNOEA [None]
  - OEDEMA PERIPHERAL [None]
